FAERS Safety Report 24150307 (Version 2)
Quarter: 2024Q3

REPORT INFORMATION
  Report Type: Spontaneous
  Country: US (occurrence: US)
  Receive Date: 20240730
  Receipt Date: 20240808
  Transmission Date: 20241017
  Serious: No
  Sender: KYOWA
  Company Number: US-KYOWAKIRIN-2024KK018046

PATIENT

DRUGS (2)
  1. NOURIANZ [Suspect]
     Active Substance: ISTRADEFYLLINE
     Indication: Parkinson^s disease
     Dosage: TAKE 1 TABLET BY MOUTH DAILY FOR 30 DAYS)
     Route: 048
     Dates: start: 20240509, end: 20240609
  2. NOURIANZ [Suspect]
     Active Substance: ISTRADEFYLLINE
     Dosage: 2 DF, QD( 2 TABLETS BY MOUTH DAILY THEREAFTER )
     Route: 048
     Dates: end: 202407

REACTIONS (1)
  - Drug ineffective [Not Recovered/Not Resolved]
